FAERS Safety Report 6048409-7 (Version None)
Quarter: 2009Q1

REPORT INFORMATION
  Report Type: 
  Country: None (occurrence: None)
  Receive Date: 20090123
  Receipt Date: 20090116
  Transmission Date: 20090719
  Serious: Yes (Life-Threatening)
  Sender: FDA-Public Use
  Company Number: A0763659A

PATIENT
  Age: 55 Year
  Sex: Male
  Weight: 75 kg

DRUGS (8)
  1. ELTROMBOPAG [Suspect]
     Indication: THROMBOCYTOPENIA
     Dosage: 25MG PER DAY
     Route: 048
     Dates: start: 20081014
  2. PLACEBO [Suspect]
     Indication: THROMBOCYTOPENIA
     Route: 048
     Dates: start: 20081211, end: 20090111
  3. PEG-INTRON [Suspect]
     Indication: HEPATITIS C
     Dosage: 80MCG WEEKLY
     Route: 058
     Dates: start: 20081211
  4. REBETOL [Suspect]
     Indication: HEPATITIS C
     Route: 048
     Dates: start: 20081211
  5. SPIRONOLACTONE [Concomitant]
     Indication: ASCITES
     Dosage: 100MG PER DAY
     Route: 048
     Dates: start: 20090107
  6. LEVAQUIN [Concomitant]
     Indication: PERITONITIS BACTERIAL
     Dosage: 500MG PER DAY
     Route: 048
     Dates: start: 20090108, end: 20090115
  7. LASIX [Concomitant]
     Indication: ASCITES
     Dosage: 40MG PER DAY
     Route: 048
     Dates: start: 20090108
  8. OXYCODONE [Concomitant]
     Indication: TOOTHACHE
     Dosage: 10MG AS REQUIRED
     Route: 048
     Dates: start: 20081220

REACTIONS (5)
  - DEEP VEIN THROMBOSIS [None]
  - INTERNATIONAL NORMALISED RATIO INCREASED [None]
  - OEDEMA PERIPHERAL [None]
  - PAIN IN EXTREMITY [None]
  - PROTHROMBIN TIME PROLONGED [None]
